FAERS Safety Report 16992291 (Version 1)
Quarter: 2019Q4

REPORT INFORMATION
  Report Type: Spontaneous
  Country: US (occurrence: US)
  Receive Date: 20191104
  Receipt Date: 20191104
  Transmission Date: 20200122
  Serious: Yes (Hospitalization, Disabling)
  Sender: FDA-Public Use
  Company Number: None

PATIENT
  Age: 30 Year
  Sex: Female
  Weight: 63 kg

DRUGS (8)
  1. PROPRANOLOL (20MG/DAY) [Concomitant]
  2. CIPROFLOXACIN. [Suspect]
     Active Substance: CIPROFLOXACIN
     Indication: URINARY TRACT INFECTION
     Dosage: ?          QUANTITY:1 TABLET(S);?
     Route: 048
     Dates: start: 20180323, end: 20190324
  3. ELAVIL (25MG/DAY) [Concomitant]
  4. EFFEXOR (250MG/DAY) [Concomitant]
  5. TRAZODONE (50-100MG/DAY) [Concomitant]
  6. VITAMIN D (1000 UNITS/DAY) [Concomitant]
  7. FLEXERIL (5-10MG/DAY) [Concomitant]
  8. SYNTHROID (50MCG/DAY) [Concomitant]

REACTIONS (13)
  - Malaise [None]
  - Hypoaesthesia [None]
  - Headache [None]
  - Altered state of consciousness [None]
  - Speech disorder [None]
  - Postural orthostatic tachycardia syndrome [None]
  - Arthralgia [None]
  - Amnesia [None]
  - Balance disorder [None]
  - Muscular weakness [None]
  - Pain in extremity [None]
  - Hypoacusis [None]
  - Visual field tests abnormal [None]

NARRATIVE: CASE EVENT DATE: 20180324
